FAERS Safety Report 6190138-3 (Version None)
Quarter: 2009Q2

REPORT INFORMATION
  Report Type: 
  Country: None (occurrence: None)
  Receive Date: 20090514
  Receipt Date: 20090506
  Transmission Date: 20091009
  Serious: Yes (Hospitalization)
  Sender: FDA-Public Use
  Company Number: CA-ABBOTT-09P-028-0572186-00

PATIENT
  Sex: Male
  Weight: 102.15 kg

DRUGS (1)
  1. HUMIRA [Suspect]
     Indication: PSORIASIS
     Route: 058

REACTIONS (7)
  - ABNORMAL SENSATION IN EYE [None]
  - BRAIN OEDEMA [None]
  - DIPLOPIA [None]
  - EYE DISORDER [None]
  - POSTOPERATIVE WOUND INFECTION [None]
  - SARCOIDOSIS [None]
  - VISUAL IMPAIRMENT [None]
